FAERS Safety Report 7539717-9 (Version None)
Quarter: 2011Q2

REPORT INFORMATION
  Report Type: 
  Country: None (occurrence: None)
  Receive Date: 20110609
  Receipt Date: 20110609
  Transmission Date: 20111010
  Serious: Yes (Hospitalization)
  Sender: FDA-Public Use
  Company Number: None

PATIENT
  Sex: Male
  Weight: 46.1 kg

DRUGS (5)
  1. LEUCOVORIN CALCIUM [Suspect]
     Dosage: 110MG
     Dates: end: 20090907
  2. METHOTREXATE [Suspect]
     Dosage: 7389MG
     Dates: end: 20090904
  3. CYCLOPHOSPHAMIDE [Suspect]
     Dosage: 3200 MG
     Dates: end: 20090817
  4. ETOPOSIDE [Suspect]
     Dosage: 730MG
     Dates: end: 20090817
  5. NEUPOGEN [Suspect]
     Dosage: 2300MG
     Dates: end: 20090827

REACTIONS (4)
  - STAPHYLOCOCCAL INFECTION [None]
  - PYREXIA [None]
  - DEVICE RELATED INFECTION [None]
  - NEUTROPENIA [None]
